FAERS Safety Report 4339136-2 (Version None)
Quarter: 2004Q2

REPORT INFORMATION
  Report Type: 
  Country: None (occurrence: None)
  Receive Date: 20040412
  Receipt Date: 20040330
  Transmission Date: 20050107
  Serious: Yes (Life-Threatening, Hospitalization, Other)
  Sender: FDA-Public Use
  Company Number: 200411295BCC

PATIENT
  Age: 60 Year
  Sex: Male
  Weight: 115.6672 kg

DRUGS (10)
  1. ASPIRIN [Suspect]
     Indication: PAIN IN JAW
     Dosage: 650 MG, ONCE, ORAL; 325 MG, TOTAL DAILY, ORAL
     Route: 048
     Dates: start: 20000401
  2. ASPIRIN [Suspect]
     Indication: PAIN IN JAW
     Dosage: 650 MG, ONCE, ORAL; 325 MG, TOTAL DAILY, ORAL
     Route: 048
     Dates: start: 20000401
  3. HIGH BLOOD PRESSURE MEDICATION [Concomitant]
  4. HYDROCHLOROTHIAZIDE [Concomitant]
  5. POTASSIUM CHLORIDE [Concomitant]
  6. ATENOLOL [Concomitant]
  7. FOLIC ACID [Concomitant]
  8. SPIRINOLACTONE [Concomitant]
  9. B6-VICOTRAT [Concomitant]
  10. B12 [Concomitant]

REACTIONS (6)
  - CARDIAC ARREST [None]
  - CORONARY ARTERY OCCLUSION [None]
  - FALL [None]
  - FEELING ABNORMAL [None]
  - MYOCARDIAL INFARCTION [None]
  - PAIN IN JAW [None]
